FAERS Safety Report 16195170 (Version 1)
Quarter: 2019Q2

REPORT INFORMATION
  Report Type: Spontaneous
  Country: NL (occurrence: NL)
  Receive Date: 20190415
  Receipt Date: 20190415
  Transmission Date: 20190711
  Serious: Yes (Life-Threatening, Hospitalization)
  Sender: FDA-Public Use
  Company Number: NL-B.I. PHARMACEUTICALS,INC./RIDGEFIELD-2019-12-001254

PATIENT
  Age: 70 Year
  Sex: Male
  Weight: 100 kg

DRUGS (13)
  1. BUDESONIDE NOVOLIZER [Concomitant]
     Indication: PRODUCT USED FOR UNKNOWN INDICATION
     Dosage: 08:00 / 14:00 / 21:00 1 DOSIS
     Route: 065
  2. DOXAZOSINE CF [Concomitant]
     Indication: PRODUCT USED FOR UNKNOWN INDICATION
     Dosage: 08:00 1 STUK
     Route: 065
  3. NOVOLIZER FORMOTEROL [Concomitant]
     Indication: PRODUCT USED FOR UNKNOWN INDICATION
     Dosage: 08:00 / 14:00 / 21:00 1 DOSIS: 12MCG/DO 60DO
     Route: 065
  4. VOLTAREN [Concomitant]
     Active Substance: DICLOFENAC SODIUM
     Indication: PRODUCT USED FOR UNKNOWN INDICATION
     Dosage: ZN VLGS AFSPR, 11,6MG/G
     Route: 065
  5. CORSODYL [Concomitant]
     Active Substance: CHLORHEXIDINE GLUCONATE
     Indication: PRODUCT USED FOR UNKNOWN INDICATION
     Dosage: 08:00 / 17:00 10 MILLILITER, 2MG/ML
     Route: 065
  6. PREDNISOLON SANDOZ [Concomitant]
     Indication: PRODUCT USED FOR UNKNOWN INDICATION
     Dosage: 08:00 / 17:00 0.5 STUK
     Route: 065
  7. JARDIANCE [Suspect]
     Active Substance: EMPAGLIFLOZIN
     Indication: DIABETES MELLITUS
     Dosage: 1X10 MG
     Route: 065
     Dates: start: 20190114, end: 20190328
  8. OMEPRAZOL MYLAN [Concomitant]
     Active Substance: OMEPRAZOLE
     Indication: PRODUCT USED FOR UNKNOWN INDICATION
     Dosage: 08:00 / 17:00 1 STUK
     Route: 065
  9. RYZODEG 70/30 [Concomitant]
     Active Substance: INSULIN ASPART\INSULIN DEGLUDEC
     Indication: PRODUCT USED FOR UNKNOWN INDICATION
     Dosage: 08:00 / 17:00 VLGS AFSPR
     Route: 065
  10. ROSUVASTATINE AUROBINDO [Concomitant]
     Indication: PRODUCT USED FOR UNKNOWN INDICATION
     Dosage: 21:00 1 STUK
     Route: 065
  11. LEVOTHYROXINENATRIUM TEVA [Concomitant]
     Indication: PRODUCT USED FOR UNKNOWN INDICATION
     Dosage: 06:00 1 STUK
     Route: 065
  12. NOVORAPID [Concomitant]
     Active Substance: INSULIN ASPART
     Indication: PRODUCT USED FOR UNKNOWN INDICATION
     Dosage: VLGS AFSPR
     Route: 065
  13. IRBESARTAN/HCT [Concomitant]
     Indication: PRODUCT USED FOR UNKNOWN INDICATION
     Dosage: 08:00 1 STUK, 300/25MG
     Route: 065

REACTIONS (2)
  - Fournier^s gangrene [Recovering/Resolving]
  - Scrotal abscess [Recovering/Resolving]

NARRATIVE: CASE EVENT DATE: 20190301
